FAERS Safety Report 6832519-8 (Version None)
Quarter: 2010Q3

REPORT INFORMATION
  Report Type: 
  Country: None (occurrence: None)
  Receive Date: 20100712
  Receipt Date: 20070314
  Transmission Date: 20110219
  Serious: No
  Sender: FDA-Public Use
  Company Number: US-PFIZER INC-2007020445

PATIENT
  Sex: Female
  Weight: 66.68 kg

DRUGS (7)
  1. CHANTIX [Suspect]
     Indication: SMOKING CESSATION THERAPY
     Dates: start: 20070309
  2. COMBIVENT [Concomitant]
  3. DUONEB [Concomitant]
  4. LEVOTHYROXINE [Concomitant]
  5. KLONOPIN [Concomitant]
  6. ACETYLSALICYLIC ACID [Concomitant]
  7. OXYGEN [Concomitant]

REACTIONS (2)
  - COUGH [None]
  - RESPIRATORY TRACT CONGESTION [None]
